FAERS Safety Report 18564136 (Version 2)
Quarter: 2021Q1

REPORT INFORMATION
  Report Type: Spontaneous
  Country: US (occurrence: US)
  Receive Date: 20201201
  Receipt Date: 20210108
  Transmission Date: 20210419
  Serious: No
  Sender: FDA-Public Use
  Company Number: US-MYLANLABS-2020M1096125

PATIENT
  Age: 61 Year
  Sex: Male
  Weight: 127 kg

DRUGS (3)
  1. LISINOPRIL. [Concomitant]
     Active Substance: LISINOPRIL
     Dosage: 20 MILLIGRAM, QD
  2. MUSE [Suspect]
     Active Substance: ALPROSTADIL
     Indication: EJACULATION DISORDER
     Dosage: 500 MICROGRAM ONCE
     Route: 066
     Dates: start: 20201114
  3. CARVEDILOL. [Concomitant]
     Active Substance: CARVEDILOL
     Dosage: 25 MILLIGRAM, BID

REACTIONS (2)
  - Penile pain [Recovered/Resolved]
  - Administration site irritation [Recovered/Resolved]

NARRATIVE: CASE EVENT DATE: 20201114
